FAERS Safety Report 5900594-0 (Version None)
Quarter: 2008Q3

REPORT INFORMATION
  Report Type: 
  Country: None (occurrence: None)
  Receive Date: 20080926
  Receipt Date: 20080922
  Transmission Date: 20090109
  Serious: Yes (Hospitalization, Other)
  Sender: FDA-Public Use
  Company Number: IE-PFIZER INC-2008074326

PATIENT
  Sex: Male
  Weight: 80 kg

DRUGS (7)
  1. LIPITOR [Suspect]
     Indication: HYPERTENSION
     Route: 048
     Dates: start: 20080130, end: 20080814
  2. LIPITOR [Suspect]
     Dosage: DAILY DOSE:80MG-FREQ:DAILY
     Route: 048
     Dates: start: 20080815
  3. RAMIPRIL [Concomitant]
     Dosage: DAILY DOSE:10MG-FREQ:DAILY
     Route: 048
     Dates: start: 20080101
  4. BENDROFLUMETHIAZIDE [Concomitant]
     Indication: HYPERTENSION
     Dosage: DAILY DOSE:2.5MG-FREQ:DAILY
     Route: 048
     Dates: start: 20080201
  5. FOLIC ACID [Concomitant]
     Indication: ANGIOPATHY
     Dosage: DAILY DOSE:5MG-FREQ:DAILY
     Route: 048
     Dates: start: 20080801
  6. FOLIC ACID [Concomitant]
     Indication: HYPERTENSION
  7. ACETYLSALICYLIC ACID SRT [Concomitant]
     Dosage: DAILY DOSE:75MG-FREQ:DAILY
     Route: 048
     Dates: start: 20080101

REACTIONS (4)
  - ASTHENIA [None]
  - GLOBAL AMNESIA [None]
  - MIGRAINE [None]
  - SYNCOPE [None]
